FAERS Safety Report 6624694-5 (Version None)
Quarter: 2010Q1

REPORT INFORMATION
  Report Type: 
  Country: None (occurrence: None)
  Receive Date: 20100310
  Receipt Date: 20091007
  Transmission Date: 20100710
  Serious: No
  Sender: FDA-Public Use
  Company Number: US-BIOGENIDEC-2009BI032513

PATIENT
  Age: 48 Year
  Sex: Male

DRUGS (2)
  1. AVONEX [Suspect]
     Indication: MULTIPLE SCLEROSIS
     Route: 030
     Dates: start: 20060203, end: 20061215
  2. AVONEX [Suspect]
     Route: 030
     Dates: start: 20090711

REACTIONS (4)
  - APHONIA [None]
  - DRUG INEFFECTIVE [None]
  - FATIGUE [None]
  - FEELING HOT [None]
